FAERS Safety Report 4725422-0 (Version None)
Quarter: 2005Q3

REPORT INFORMATION
  Report Type: 
  Country: None (occurrence: None)
  Receive Date: 20050721
  Receipt Date: 20050531
  Transmission Date: 20060218
  Serious: No
  Sender: FDA-Public Use
  Company Number: 2005SP001146

PATIENT
  Age: 53 Year
  Sex: Male
  Weight: 86.1834 kg

DRUGS (5)
  1. LUNESTA [Suspect]
     Indication: INSOMNIA
     Dosage: 3 -6 MG; HS; ORAL
     Route: 048
     Dates: start: 20000523, end: 20050526
  2. LUNESTA [Suspect]
     Indication: INSOMNIA
     Dosage: 3 -6 MG; HS; ORAL
     Route: 048
     Dates: start: 20050527, end: 20050529
  3. LAMOTRIGINE [Concomitant]
  4. DEPAKOTE [Concomitant]
  5. XANAX [Concomitant]

REACTIONS (2)
  - DRUG INEFFECTIVE [None]
  - INSOMNIA [None]
